FAERS Safety Report 13050440 (Version 1)
Quarter: 2016Q4

REPORT INFORMATION
  Report Type: Spontaneous
  Country: US (occurrence: US)
  Receive Date: 20161221
  Receipt Date: 20161221
  Transmission Date: 20170207
  Serious: No
  Sender: FDA-Public Use
  Company Number: US-NOVOPROD-499963

PATIENT
  Age: 72 Year
  Sex: Female

DRUGS (3)
  1. METFORMIN [Concomitant]
     Active Substance: METFORMIN HYDROCHLORIDE
     Indication: TYPE 2 DIABETES MELLITUS
     Route: 048
  2. PREDNISONE. [Suspect]
     Active Substance: PREDNISONE
     Indication: PRODUCT USED FOR UNKNOWN INDICATION
     Route: 048
  3. LEVEMIR [Suspect]
     Active Substance: INSULIN DETEMIR
     Indication: TYPE 2 DIABETES MELLITUS
     Route: 058
     Dates: end: 20160318

REACTIONS (8)
  - Tongue discolouration [Recovering/Resolving]
  - Tongue blistering [Recovering/Resolving]
  - Tinnitus [Recovered/Resolved]
  - Paraesthesia oral [Recovering/Resolving]
  - Dizziness [Recovered/Resolved]
  - Tremor [Recovered/Resolved]
  - Vision blurred [Recovering/Resolving]
  - Asthenia [Recovered/Resolved]
